FAERS Safety Report 15336925 (Version 1)
Quarter: 2018Q3

REPORT INFORMATION
  Report Type: Spontaneous
  Country: US (occurrence: US)
  Receive Date: 20180831
  Receipt Date: 20180831
  Transmission Date: 20181010
  Serious: No
  Sender: FDA-Public Use
  Company Number: US-LUPIN PHARMACEUTICALS INC.-2017-06141

PATIENT
  Sex: Female

DRUGS (1)
  1. AMLODIPINE BESYLATE TABLETS USP, 2.5 MG [Suspect]
     Active Substance: AMLODIPINE BESYLATE
     Indication: PRODUCT USED FOR UNKNOWN INDICATION
     Dosage: 2.5 MG, UNK
     Route: 048

REACTIONS (2)
  - Foreign body in respiratory tract [Not Recovered/Not Resolved]
  - Product use issue [Unknown]
